FAERS Safety Report 24130798 (Version 10)
Quarter: 2025Q1

REPORT INFORMATION
  Report Type: Report from Study
  Country: DE (occurrence: DE)
  Receive Date: 20240724
  Receipt Date: 20250319
  Transmission Date: 20250408
  Serious: Yes (Hospitalization, Other)
  Sender: TAKEDA
  Company Number: DE-TAKEDA-2024TUS073017

PATIENT
  Age: 27 Year
  Sex: Female
  Weight: 82 kg

DRUGS (5)
  1. LANADELUMAB [Suspect]
     Active Substance: LANADELUMAB
     Indication: Hereditary angioedema
     Dosage: UNK UNK, Q3WEEKS
     Dates: start: 20230905
  2. LANADELUMAB [Suspect]
     Active Substance: LANADELUMAB
     Dosage: UNK UNK, Q5WEEKS
  3. LEVOTHYROXINE SODIUM [Concomitant]
     Active Substance: LEVOTHYROXINE SODIUM
     Indication: Autoimmune thyroiditis
     Dosage: 25 MICROGRAM, QD
     Dates: start: 2015, end: 20240903
  4. LEVOTHYROXINE SODIUM [Concomitant]
     Active Substance: LEVOTHYROXINE SODIUM
  5. BERINERT [Concomitant]
     Active Substance: HUMAN C1-ESTERASE INHIBITOR
     Indication: Prophylaxis
     Dosage: 1500 INTERNATIONAL UNIT, QD
     Dates: start: 20240628, end: 20240629

REACTIONS (8)
  - Anal abscess [Recovered/Resolved]
  - Post procedural sepsis [Recovered/Resolved]
  - Bartholin^s cyst [Recovered/Resolved]
  - Procedural pain [Recovered/Resolved]
  - Post procedural inflammation [Recovered/Resolved]
  - Anal fistula [Not Recovered/Not Resolved]
  - Pustule [Not Recovered/Not Resolved]
  - Product use issue [Not Recovered/Not Resolved]

NARRATIVE: CASE EVENT DATE: 20240517
